FAERS Safety Report 9369637 (Version 1)
Quarter: 2013Q2

REPORT INFORMATION
  Report Type: Spontaneous
  Country: US (occurrence: None)
  Receive Date: 20130625
  Receipt Date: 20130625
  Transmission Date: 20140414
  Serious: Yes (Other)
  Sender: FDA-Public Use
  Company Number: None

PATIENT
  Age: 57 Year
  Sex: Female
  Weight: 61.24 kg

DRUGS (13)
  1. BUTORPHANOL TARTRATE [Suspect]
     Indication: MIGRAINE
     Dosage: 1 SPRAY, ONCE FOR SEVERE HEADACHE, SPRAYED IN NOSTRIL
     Dates: start: 20130608, end: 20130608
  2. WELLBUTRIN XL 150MG + WELLBUTRIN 75MG [Concomitant]
  3. ZANTAC 150MG [Concomitant]
  4. ZOVIRAX 400MG [Concomitant]
  5. NORTRIPTYLINE 10MG [Concomitant]
  6. FIORCET [Concomitant]
  7. PROGESTERONE [Concomitant]
  8. ADVAIR [Concomitant]
  9. ESTROGENS [Concomitant]
  10. ASTELIN 137 MCG [Concomitant]
  11. 150MG MAGNESIUM/MANGANESE [Concomitant]
  12. 3000 U VIT. D ORAL SPRAY [Concomitant]
  13. 500MCG VIT B-12 ORAL SPRAY [Concomitant]

REACTIONS (3)
  - Dizziness [None]
  - Malaise [None]
  - Vomiting [None]
